FAERS Safety Report 4845494-2 (Version None)
Quarter: 2005Q4

REPORT INFORMATION
  Report Type: 
  Country: None (occurrence: None)
  Receive Date: 20051201
  Receipt Date: 20051114
  Transmission Date: 20060501
  Serious: Yes (Other)
  Sender: FDA-Public Use
  Company Number: US200511000384

PATIENT
  Age: 53 Year
  Sex: Female

DRUGS (4)
  1. HUMULIN LENTE (HUMAN INSULIN (RDNA ORIGIN) LENTE) VIAL [Suspect]
     Indication: DIABETES MELLITUS INSULIN-DEPENDENT
     Dosage: PARENTERAL
     Route: 051
  2. DEPAKOTE [Concomitant]
  3. ZOLOFT [Concomitant]
  4. XANAX [Concomitant]

REACTIONS (1)
  - MULTIPLE SCLEROSIS [None]
